FAERS Safety Report 7434537-8 (Version None)
Quarter: 2011Q2

REPORT INFORMATION
  Report Type: 
  Country: None (occurrence: None)
  Receive Date: 20110425
  Receipt Date: 20110412
  Transmission Date: 20111010
  Serious: Yes (Hospitalization)
  Sender: FDA-Public Use
  Company Number: CH-BAYER-2010-001935

PATIENT
  Sex: Male

DRUGS (3)
  1. SORAFENIB (RAF KINASE INHIBITOR) [Suspect]
     Indication: HEPATIC NEOPLASM MALIGNANT
     Dosage: 800 MG, QD
     Route: 048
     Dates: start: 20101117, end: 20101202
  2. SORAFENIB (RAF KINASE INHIBITOR) [Suspect]
     Dosage: 200 MG, BID
     Dates: start: 20101208
  3. SORAFENIB (RAF KINASE INHIBITOR) [Suspect]
     Dosage: 400 MG
     Route: 048
     Dates: start: 20101117, end: 20110310

REACTIONS (6)
  - RENAL FAILURE ACUTE [None]
  - C-REACTIVE PROTEIN INCREASED [None]
  - ASTHENIA [None]
  - HYPOKALAEMIA [None]
  - DIARRHOEA [None]
  - ASCITES [None]
